FAERS Safety Report 23604528 (Version 1)
Quarter: 2024Q1

REPORT INFORMATION
  Report Type: Spontaneous
  Country: US (occurrence: US)
  Receive Date: 20240307
  Receipt Date: 20240307
  Transmission Date: 20240410
  Serious: Yes (Other)
  Sender: FDA-Public Use
  Company Number: US-BAXTER-2024BAX013692

PATIENT
  Age: 62 Year
  Sex: Male
  Weight: 72 kg

DRUGS (19)
  1. EPTIFIBATIDE [Suspect]
     Active Substance: EPTIFIBATIDE
     Indication: Thrombosis
     Dosage: 2 UG/KG PER MINUTE WITHOUT A BOLUS
     Route: 065
  2. EPTIFIBATIDE [Suspect]
     Active Substance: EPTIFIBATIDE
     Indication: Acute myocardial infarction
     Dosage: CONTINUOUS INFUSION
     Route: 041
  3. FUROSEMIDE [Suspect]
     Active Substance: FUROSEMIDE
     Indication: Oedema
     Dosage: 80 MG DAILY
     Route: 042
  4. FUROSEMIDE [Suspect]
     Active Substance: FUROSEMIDE
     Indication: Venous pressure jugular increased
  5. FUROSEMIDE [Suspect]
     Active Substance: FUROSEMIDE
     Indication: Fluid imbalance
  6. ALBUTEROL SULFATE [Concomitant]
     Active Substance: ALBUTEROL SULFATE
     Dosage: HOME MEDICATION 90 UG PER ACTUATION (2 PUFFS AS NEEDED)
  7. ATORVASTATIN [Concomitant]
     Active Substance: ATORVASTATIN
     Dosage: HOME MEDICATION 40 MG AT BEDTIME
     Route: 065
  8. CARVEDILOL [Concomitant]
     Active Substance: CARVEDILOL
     Dosage: HOME MEDICATION 6.25 MG TWICE DAILY
     Route: 065
  9. HYDROCHLOROTHIAZIDE [Concomitant]
     Active Substance: HYDROCHLOROTHIAZIDE
     Dosage: HOME MEDICATION 25 MG DAILY
     Route: 065
  10. ISOSORBIDE MONONITRATE [Concomitant]
     Active Substance: ISOSORBIDE MONONITRATE
     Dosage: HOME MEDICATION EXTENDED RELEASE 30 MG DAILY
     Route: 065
  11. LISINOPRIL [Concomitant]
     Active Substance: LISINOPRIL
     Dosage: HOME MEDICATION 20 MG DAILY
     Route: 065
  12. RANOLAZINE [Concomitant]
     Active Substance: RANOLAZINE
     Dosage: HOME MEDICATION EXTENDED RELEASE 500 MG TWICE DAILY
     Route: 065
  13. TICAGRELOR [Concomitant]
     Active Substance: TICAGRELOR
     Dosage: HOME MEDICATION 90 TWICE DAILY
     Route: 065
  14. TICAGRELOR [Concomitant]
     Active Substance: TICAGRELOR
     Dosage: AS AN OUTPATIENT, WITH HIS LAST DOSE ON THE MORNING OF PRESENTATION AT THE OUTSIDE FACILITY
     Route: 065
  15. ASPIRIN [Concomitant]
     Active Substance: ASPIRIN
     Dosage: HOME MEDICATION 81 MG DAILY
     Route: 065
  16. HEPARIN [Concomitant]
     Active Substance: HEPARIN SODIUM
     Indication: Anticoagulant therapy
     Route: 065
  17. NOREPINEPHRINE [Concomitant]
     Active Substance: NOREPINEPHRINE\NOREPINEPHRINE BITARTRATE
     Indication: Blood pressure management
     Route: 042
  18. VANCOMYCIN [Concomitant]
     Active Substance: VANCOMYCIN
     Indication: Septic shock
     Dosage: TROUGH-BASED THERAPY ON HOSPITAL DAY 7
     Route: 065
  19. CEFAZOLIN [Concomitant]
     Active Substance: CEFAZOLIN
     Indication: Septic shock
     Dosage: 2 G PER DAY ON HOSPITAL DAY 7
     Route: 042

REACTIONS (1)
  - Immune thrombocytopenia [Recovering/Resolving]
